FAERS Safety Report 17703468 (Version 5)
Quarter: 2020Q4

REPORT INFORMATION
  Report Type: Report from Study
  Country: None (occurrence: IL)
  Receive Date: 20200423
  Receipt Date: 20201007
  Transmission Date: 20210113
  Serious: Yes (Hospitalization, Other)
  Sender: FDA-Public Use
  Company Number: IL-ABBVIE-20K-082-3371151-00

PATIENT
  Age: 44 Year
  Sex: Male

DRUGS (3)
  1. HUMIRA [Suspect]
     Active Substance: ADALIMUMAB
     Dosage: SECOND LOADING DOSE
     Route: 058
     Dates: start: 20200322, end: 2020
  2. HUMIRA [Suspect]
     Active Substance: ADALIMUMAB
     Route: 058
     Dates: start: 2020
  3. HUMIRA [Suspect]
     Active Substance: ADALIMUMAB
     Indication: CROHN^S DISEASE
     Dosage: FIRST LOADING DOSE
     Route: 058
     Dates: start: 202003, end: 202003

REACTIONS (11)
  - Flatulence [Unknown]
  - Crohn^s disease [Unknown]
  - Abdominal pain [Unknown]
  - Fear of disease [Unknown]
  - Blood test abnormal [Recovered/Resolved]
  - Incorrect dose administered [Recovered/Resolved]
  - Vomiting [Not Recovered/Not Resolved]
  - Obstruction [Unknown]
  - Gastric infection [Unknown]
  - Food intolerance [Unknown]
  - Insomnia [Not Recovered/Not Resolved]

NARRATIVE: CASE EVENT DATE: 2020
